FAERS Safety Report 6042581-0 (Version None)
Quarter: 2009Q1

REPORT INFORMATION
  Report Type: 
  Country: None (occurrence: None)
  Receive Date: 20090119
  Receipt Date: 20090114
  Transmission Date: 20090719
  Serious: No
  Sender: FDA-Public Use
  Company Number: AU-JNJFOC-20090102543

PATIENT
  Age: 87 Year
  Sex: Female

DRUGS (3)
  1. DURAGESIC-100 [Suspect]
     Dosage: 25UG/HR PLUS 12.5UG/HR PATCH
     Route: 062
  2. DURAGESIC-100 [Suspect]
     Indication: PAIN
     Route: 062
  3. ACETAMINOPHEN [Concomitant]

REACTIONS (3)
  - DRUG ADMINISTERED AT INAPPROPRIATE SITE [None]
  - FATIGUE [None]
  - SOMNOLENCE [None]
